FAERS Safety Report 5046628-X (Version None)
Quarter: 2006Q3

REPORT INFORMATION
  Report Type: 
  Country: None (occurrence: None)
  Receive Date: 20060707
  Receipt Date: 20060707
  Transmission Date: 20061208
  Serious: Yes (Hospitalization)
  Sender: FDA-Public Use
  Company Number: None

PATIENT
  Age: 59 Year
  Sex: Male

DRUGS (15)
  1. SULFAMETHOXAZOLE + TRIMETHOPRIM [Suspect]
     Indication: AORTIC VALVE REPLACEMENT
     Dosage: 1 TABLET BID PO
     Route: 048
     Dates: start: 20060418, end: 20060422
  2. COUMADIN [Concomitant]
  3. OMEPRAZOLE [Concomitant]
  4. ARANESP [Concomitant]
  5. HYDRALAZINE HCL [Concomitant]
  6. FESO4 [Concomitant]
  7. ZOCOR [Concomitant]
  8. NITROGLYCERIN [Concomitant]
  9. FLONASE [Concomitant]
  10. COMBIVENT [Concomitant]
  11. COLACE [Concomitant]
  12. LASIX [Concomitant]
  13. ASPIRIN [Concomitant]
  14. WARFARIN SODIUM [Suspect]
     Indication: ANTIBIOTIC PROPHYLAXIS
     Dosage: 5MG  HS  PO
     Route: 048
     Dates: start: 20060503, end: 20060706
  15. WARFARIN SODIUM [Suspect]
     Indication: NASAL CAVITY PACKING
     Dosage: 5MG  HS  PO
     Route: 048
     Dates: start: 20060503, end: 20060706

REACTIONS (3)
  - EPISTAXIS [None]
  - HAEMATOCRIT DECREASED [None]
  - INTERNATIONAL NORMALISED RATIO DECREASED [None]
